FAERS Safety Report 25069269 (Version 1)
Quarter: 2025Q1

REPORT INFORMATION
  Report Type: Spontaneous
  Country: FI (occurrence: FI)
  Receive Date: 20250312
  Receipt Date: 20250312
  Transmission Date: 20250409
  Serious: Yes (Death, Other)
  Sender: MYLAN
  Company Number: None

PATIENT
  Age: 81 Year
  Sex: Female

DRUGS (14)
  1. ATORVASTATIN [Suspect]
     Active Substance: ATORVASTATIN
     Indication: Type IIa hyperlipidaemia
     Dosage: 80 MILLIGRAM, QD (80 MG / DAY)
     Dates: start: 20241113, end: 20241205
  2. PANADOL [Concomitant]
     Active Substance: ACETAMINOPHEN
     Dosage: 1 DOSAGE FORM, BID (1 TABLET TWO TIMES PER DAY)
  3. Felodipin Actavis [Concomitant]
     Dosage: 1 DOSAGE FORM, BID (1 TABLET TWO TIMES PER DAY)
  4. ASPIRIN [Concomitant]
     Active Substance: ASPIRIN
     Dosage: 1 DOSAGE FORM, QD (1 TABLET ONCE PER DAY)
  5. FUROSEMIDE [Concomitant]
     Active Substance: FUROSEMIDE
  6. COZAAR [Concomitant]
     Active Substance: LOSARTAN POTASSIUM
     Dosage: 1 DOSAGE FORM, BID (1 TABLET TWO TIMES PER DAY)
  7. EZETIMIBE [Concomitant]
     Active Substance: EZETIMIBE
  8. POLYETHYLENE GLYCOL 4000 [Concomitant]
     Active Substance: POLYETHYLENE GLYCOL 4000
     Dosage: 1 DOSAGE FORM, BID (1 DOSE TWO TIMES PER DAY)
  9. DAPAGLIFLOZIN [Concomitant]
     Active Substance: DAPAGLIFLOZIN
     Dosage: 1 DOSAGE FORM, QD (1 TABLET ONCE PER DAY)
  10. CALCIUM CARBONATE [Concomitant]
     Active Substance: CALCIUM CARBONATE
     Dosage: 2 DOSAGE FORM, QD (2 TABLETS ONCE A DAY)
  11. RISPERIDONE [Concomitant]
     Active Substance: RISPERIDONE
     Dosage: 1 DOSAGE FORM, QD (1 TABLET ONCE PER DAY)
  12. REPATHA [Concomitant]
     Active Substance: EVOLOCUMAB
     Dosage: UNK, Q2W
  13. MIRTAZAPINE [Concomitant]
     Active Substance: MIRTAZAPINE
  14. ALBUTEROL SULFATE [Concomitant]
     Active Substance: ALBUTEROL SULFATE

REACTIONS (6)
  - Drug-induced liver injury [Fatal]
  - Retroperitoneal haemorrhage [Fatal]
  - Hypotension [Recovered/Resolved with Sequelae]
  - Renal failure [Recovered/Resolved with Sequelae]
  - C-reactive protein increased [Recovered/Resolved with Sequelae]
  - Haemoglobin decreased [Recovered/Resolved with Sequelae]

NARRATIVE: CASE EVENT DATE: 20241130
